FAERS Safety Report 4810756-1 (Version None)
Quarter: 2005Q4

REPORT INFORMATION
  Report Type: 
  Country: None (occurrence: None)
  Receive Date: 20051026
  Receipt Date: 20050608
  Transmission Date: 20060501
  Serious: Yes (Disabling)
  Sender: FDA-Public Use
  Company Number: US-MERCK-0506USA01338

PATIENT
  Age: 66 Year
  Sex: Male
  Weight: 66 kg

DRUGS (6)
  1. FOSAMAX [Suspect]
     Indication: OSTEOPOROSIS
     Route: 048
     Dates: start: 19951201
  2. LUPRON [Concomitant]
     Indication: PROSTATE CANCER METASTATIC
     Route: 030
     Dates: start: 19890101
  3. FLUTAMIDE [Concomitant]
     Indication: PROSTATE CANCER METASTATIC
     Route: 048
     Dates: start: 19890101
  4. CALCIUM (UNSPECIFIED) [Concomitant]
     Route: 065
  5. VITAMIN D (UNSPECIFIED) [Concomitant]
     Route: 065
  6. NAPROSYN [Concomitant]
     Indication: OSTEOARTHRITIS
     Route: 048
     Dates: start: 19950101

REACTIONS (2)
  - ARTHRITIS [None]
  - LUMBAR SPINAL STENOSIS [None]
